FAERS Safety Report 4782423-4 (Version None)
Quarter: 2005Q3

REPORT INFORMATION
  Report Type: 
  Country: None (occurrence: None)
  Receive Date: 20050929
  Receipt Date: 20040928
  Transmission Date: 20060218
  Serious: No
  Sender: FDA-Public Use
  Company Number: 383440

PATIENT
  Sex: Female

DRUGS (3)
  1. COREG [Suspect]
     Dosage: 6.25MG TWICE PER DAY
     Route: 048
  2. ENALAPRIL [Concomitant]
  3. SYNTHROID [Concomitant]

REACTIONS (4)
  - DIZZINESS [None]
  - LOCAL SWELLING [None]
  - NAUSEA [None]
  - PRURITUS [None]
